FAERS Safety Report 17480891 (Version 1)
Quarter: 2020Q1

REPORT INFORMATION
  Report Type: Spontaneous
  Country: FR (occurrence: FR)
  Receive Date: 20200301
  Receipt Date: 20200301
  Transmission Date: 20200409
  Serious: Yes (Death, Other)
  Sender: FDA-Public Use
  Company Number: FR-BRISTOL-MYERS SQUIBB COMPANY-BMS-2020-017390

PATIENT
  Age: 84 Year
  Sex: Male
  Weight: 73 kg

DRUGS (1)
  1. OPDIVO [Suspect]
     Active Substance: NIVOLUMAB
     Indication: LUNG ADENOCARCINOMA
     Route: 042
     Dates: start: 20190515, end: 20190613

REACTIONS (5)
  - Hepatocellular injury [Fatal]
  - Cardio-respiratory arrest [Fatal]
  - Myocarditis [Fatal]
  - Rhabdomyolysis [Fatal]
  - Prescribed underdose [Unknown]

NARRATIVE: CASE EVENT DATE: 20190626
